FAERS Safety Report 21005579 (Version 1)
Quarter: 2022Q2

REPORT INFORMATION
  Report Type: Spontaneous
  Country: US (occurrence: US)
  Receive Date: 20220624
  Receipt Date: 20220624
  Transmission Date: 20220720
  Serious: Yes (Other)
  Sender: FDA-Public Use
  Company Number: US-SA-SAC20220623000386

PATIENT
  Age: 48 Year
  Sex: Male

DRUGS (1)
  1. ZANTAC [Suspect]
     Active Substance: RANITIDINE HYDROCHLORIDE
     Dosage: UNK, QD
     Dates: start: 199403, end: 200912

REACTIONS (3)
  - Colorectal cancer stage III [Unknown]
  - Gastric cancer stage III [Unknown]
  - Small intestine carcinoma stage III [Unknown]

NARRATIVE: CASE EVENT DATE: 20201101
